FAERS Safety Report 11086712 (Version 1)
Quarter: 2015Q2

REPORT INFORMATION
  Report Type: Spontaneous
  Country: US (occurrence: None)
  Receive Date: 20150501
  Receipt Date: 20150501
  Transmission Date: 20150821
  Serious: Yes (Hospitalization)
  Sender: FDA-Public Use
  Company Number: None

PATIENT
  Age: 72 Year
  Sex: Female
  Weight: 48.9 kg

DRUGS (3)
  1. FLUCONAZOLE 200MG [Suspect]
     Active Substance: FLUCONAZOLE
     Indication: CANDIDA INFECTION
     Route: 048
     Dates: start: 20150319, end: 20150408
  2. OMEPRAZOLE (PRILOSEC) [Concomitant]
  3. LEVOTHYROXINE (SYNTHROID, LEVOTHROID) [Concomitant]

REACTIONS (1)
  - Stevens-Johnson syndrome [None]

NARRATIVE: CASE EVENT DATE: 20150403
